FAERS Safety Report 5295361-8 (Version None)
Quarter: 2007Q2

REPORT INFORMATION
  Report Type: 
  Country: None (occurrence: None)
  Receive Date: 20070405
  Receipt Date: 20070323
  Transmission Date: 20071010
  Serious: Yes (Hospitalization)
  Sender: FDA-Public Use
  Company Number: 237885

PATIENT
  Age: 68 Year
  Sex: Male

DRUGS (4)
  1. AVASTIN [Suspect]
     Indication: COLORECTAL CANCER
     Dosage: 5 MG/KG, Q2W, UNK
     Dates: start: 20060509
  2. IRINOTECAN HCL [Suspect]
     Indication: COLORECTAL CANCER
     Dosage: 180 MG/M2, Q2W, UNK
     Dates: start: 20060509
  3. CETUXIMAB (CETUXIMAB) [Suspect]
     Indication: COLORECTAL CANCER
     Dosage: 200 MG/M2, 1/WEEK, UNK
     Dates: start: 20060509
  4. ATENOLOL [Concomitant]

REACTIONS (7)
  - BRONCHITIS [None]
  - EPISTAXIS [None]
  - INFLUENZA LIKE ILLNESS [None]
  - MALAISE [None]
  - MYALGIA [None]
  - PYREXIA [None]
  - UNEVALUABLE EVENT [None]
